FAERS Safety Report 7470014-6 (Version None)
Quarter: 2011Q2

REPORT INFORMATION
  Report Type: 
  Country: None (occurrence: None)
  Receive Date: 20110510
  Receipt Date: 20110504
  Transmission Date: 20111010
  Serious: Yes (Other)
  Sender: FDA-Public Use
  Company Number: US-ROCHE-775654

PATIENT
  Age: 48 Year
  Sex: Female

DRUGS (1)
  1. BONIVA [Suspect]
     Dosage: STRENGTH: 150
     Route: 065

REACTIONS (2)
  - SUICIDAL BEHAVIOUR [None]
  - DEPRESSION [None]
